FAERS Safety Report 14289101 (Version 3)
Quarter: 2018Q1

REPORT INFORMATION
  Report Type: Report from Study
  Country: NL (occurrence: NL)
  Receive Date: 20171214
  Receipt Date: 20180123
  Transmission Date: 20180509
  Serious: Yes (Hospitalization)
  Sender: FDA-Public Use
  Company Number: NL-PFIZER INC-2017519672

PATIENT
  Age: 3 Year
  Sex: Female
  Weight: 14.1 kg

DRUGS (7)
  1. SIROLIMUS. [Suspect]
     Active Substance: SIROLIMUS
     Dosage: 0.6 MG, 2X/DAY
     Dates: start: 20171026, end: 20171116
  2. TRIMETHOPRIM SULFAMETHOXAZOLE [Concomitant]
     Active Substance: SULFAMETHOXAZOLE\TRIMETHOPRIM
     Dosage: UNK
     Route: 048
     Dates: start: 20171117
  3. COLECALCIFEROL [Concomitant]
     Active Substance: CHOLECALCIFEROL
     Dosage: UNK
     Route: 048
     Dates: start: 20140630
  4. SIROLIMUS. [Suspect]
     Active Substance: SIROLIMUS
     Dosage: 0.6 MG, 2X/DAY
     Dates: start: 20171010, end: 20171017
  5. SIROLIMUS. [Suspect]
     Active Substance: SIROLIMUS
     Dosage: 0.6 MG, 1X/DAY
     Dates: start: 20171120, end: 20171123
  6. SALBUTAMOL [Concomitant]
     Active Substance: ALBUTEROL
     Indication: DEVICE OCCLUSION
     Dosage: UNK
     Dates: start: 20161209
  7. SIROLIMUS. [Suspect]
     Active Substance: SIROLIMUS
     Dosage: 0.3 MG, 2X/DAY
     Dates: start: 20171002, end: 20171009

REACTIONS (1)
  - Respiratory failure [Recovered/Resolved]

NARRATIVE: CASE EVENT DATE: 20171123
